FAERS Safety Report 8019757-6 (Version None)
Quarter: 2012Q1

REPORT INFORMATION
  Report Type: 
  Country: None (occurrence: None)
  Receive Date: 20120103
  Receipt Date: 20111220
  Transmission Date: 20120608
  Serious: Yes (Death, Hospitalization)
  Sender: FDA-Public Use
  Company Number: GR-GLAXOSMITHKLINE-B0772098A

PATIENT
  Age: 15 Year
  Sex: Male

DRUGS (3)
  1. HEPARIN [Suspect]
  2. RELENZA [Suspect]
     Indication: H1N1 INFLUENZA
     Route: 042
     Dates: start: 20110310, end: 20110313
  3. OSELTAMIVIR [Concomitant]
     Dates: start: 20110201, end: 20110309

REACTIONS (4)
  - ANAPHYLACTIC SHOCK [None]
  - RASH GENERALISED [None]
  - BRONCHOSPASM [None]
  - HYPOTENSION [None]
